FAERS Safety Report 16917717 (Version 1)
Quarter: 2019Q4

REPORT INFORMATION
  Report Type: Spontaneous
  Country: FR (occurrence: FR)
  Receive Date: 20191015
  Receipt Date: 20191015
  Transmission Date: 20200122
  Serious: Yes (Death, Life-Threatening, Disabling, Other)
  Sender: FDA-Public Use
  Company Number: FR-SHILPA MEDICARE LIMITED-SML-FR-2019-00215

PATIENT
  Age: 59 Year
  Sex: Female

DRUGS (4)
  1. IMATINIB, UNKNOWN [Suspect]
     Active Substance: IMATINIB
     Indication: GASTROINTESTINAL STROMAL TUMOUR
     Dosage: 800 MG/DAY ADMINISTRATED BY NASO-GASTRIC TUBE, FROM MARCH 2017 400MG/D PER OS, FROM NOVEMBER 2017 DO
     Route: 065
     Dates: start: 201701
  2. IMATINIB, UNKNOWN [Suspect]
     Active Substance: IMATINIB
     Indication: GASTROINTESTINAL STROMAL TUMOUR
     Dosage: 800 MG/DAY ADMINISTRATED BY NASO-GASTRIC TUBE, FROM MARCH 2017 400MG/D PER OS, FROM NOVEMBER 2017 DO
     Route: 065
     Dates: start: 201701
  3. IMATINIB, UNKNOWN [Suspect]
     Active Substance: IMATINIB
     Indication: ABDOMINAL COMPARTMENT SYNDROME
  4. IMATINIB, UNKNOWN [Suspect]
     Active Substance: IMATINIB
     Indication: ABDOMINAL COMPARTMENT SYNDROME

REACTIONS (4)
  - Condition aggravated [Fatal]
  - Therapy responder [Recovered/Resolved]
  - Drug ineffective [Not Recovered/Not Resolved]
  - Off label use [Recovered/Resolved with Sequelae]
